FAERS Safety Report 24354371 (Version 1)
Quarter: 2024Q3

REPORT INFORMATION
  Report Type: Spontaneous
  Country: US (occurrence: US)
  Receive Date: 20240923
  Receipt Date: 20240923
  Transmission Date: 20241017
  Serious: Yes (Other)
  Sender: REGENERON
  Company Number: US-REGENERON PHARMACEUTICALS, INC.-2024-126238

PATIENT
  Sex: Female

DRUGS (5)
  1. EYLEA [Suspect]
     Active Substance: AFLIBERCEPT
     Indication: Product used for unknown indication
     Dosage: UNK, FIRST INJECTION IN BOTH EYES (FORMULATION: PFS GERRESHEIMER)
     Dates: start: 20240430, end: 20240430
  2. EYLEA [Suspect]
     Active Substance: AFLIBERCEPT
     Dosage: UNK, SECOND INJECTION IN BOTH EYES (FORMULATION: PFS GERRESHEIMER)
     Dates: start: 20240529, end: 20240529
  3. EYLEA [Suspect]
     Active Substance: AFLIBERCEPT
     Dosage: UNK, THIRD INJECTION (FORMULATION: PFS GERRESHEIMER)
     Dates: start: 20240702, end: 20240702
  4. EYLEA [Suspect]
     Active Substance: AFLIBERCEPT
     Dosage: UNK, FOURTH INJECTION (FORMULATION: PFS GERRESHEIMER)
     Dates: start: 20240807, end: 20240807
  5. EYLEA [Suspect]
     Active Substance: AFLIBERCEPT
     Dosage: UNK, FIFTH INJECTION (FORMULATION: PFS GERRESHEIMER)
     Dates: start: 20240916

REACTIONS (1)
  - Sudden hearing loss [Unknown]

NARRATIVE: CASE EVENT DATE: 20240101
